FAERS Safety Report 6271101-0 (Version None)
Quarter: 2009Q3

REPORT INFORMATION
  Report Type: 
  Country: None (occurrence: None)
  Receive Date: 20090716
  Receipt Date: 20090406
  Transmission Date: 20100115
  Serious: No
  Sender: FDA-Public Use
  Company Number: US-TYCO HEALTHCARE/MALLINCKRODT-T200900824

PATIENT
  Sex: Female

DRUGS (3)
  1. OXYCODONE HCL AND ACETAMINOPHEN [Suspect]
     Indication: BACK PAIN
     Dosage: 2 TABS Q 2-4 HOURS
     Route: 048
     Dates: start: 20090321, end: 20090327
  2. OXYCODONE HCL AND ACETAMINOPHEN [Suspect]
     Indication: PAIN IN EXTREMITY
  3. XANAX [Concomitant]
     Indication: ANXIETY
     Dosage: 10 MG, QID

REACTIONS (11)
  - BLOOD PRESSURE INCREASED [None]
  - BRADYCARDIA [None]
  - CHEST DISCOMFORT [None]
  - DRUG EFFECT DECREASED [None]
  - DRY MOUTH [None]
  - DYSPNOEA [None]
  - FEELING ABNORMAL [None]
  - FEELING JITTERY [None]
  - HYPERSENSITIVITY [None]
  - MALAISE [None]
  - TACHYCARDIA [None]
